FAERS Safety Report 4324872-4 (Version None)
Quarter: 2004Q1

REPORT INFORMATION
  Report Type: 
  Country: None (occurrence: None)
  Receive Date: 20040325
  Receipt Date: 20040325
  Transmission Date: 20041129
  Serious: Yes (Life-Threatening, Hospitalization)
  Sender: FDA-Public Use
  Company Number: None

PATIENT
  Age: 73 Year
  Sex: Male
  Weight: 68 kg

DRUGS (17)
  1. HYTRIN [Suspect]
  2. DIAZEPAM [Concomitant]
  3. SALMETEROL DISKUS INHL [Concomitant]
  4. OMEPRAZOLE [Concomitant]
  5. CLOPIDOGREL [Concomitant]
  6. METHADONE [Concomitant]
  7. MINOCYCLINE HCL [Concomitant]
  8. ALBUTEROL [Concomitant]
  9. IPRATROPRIUM BROMIDE INH [Concomitant]
  10. VENLAFAXINE [Concomitant]
  11. SPIRONOLACTONE [Concomitant]
  12. ENALAPRIL MALEATE [Concomitant]
  13. DIPHENHYDRAMINE HCL [Concomitant]
  14. ALBUTEROL 90/IPRATROPIUM INH [Concomitant]
  15. ACETAMINOPHEN [Concomitant]
  16. GATIFLOXACIN [Concomitant]
  17. CEFAZOLIN [Concomitant]

REACTIONS (2)
  - HYPOTENSION [None]
  - TACHYCARDIA [None]
